FAERS Safety Report 18310190 (Version 1)
Quarter: 2020Q3

REPORT INFORMATION
  Report Type: Spontaneous
  Country: US (occurrence: US)
  Receive Date: 20200925
  Receipt Date: 20200925
  Transmission Date: 20201103
  Serious: No
  Sender: FDA-Public Use
  Company Number: US-ALVOGEN-2020-ALVOGEN-113250

PATIENT
  Sex: Female
  Weight: 67.13 kg

DRUGS (3)
  1. GRALISE [Suspect]
     Active Substance: GABAPENTIN
     Indication: NEURALGIA
     Dosage: 300 MG, TID
     Route: 048
     Dates: start: 201807
  2. PREGABALIN. [Concomitant]
     Active Substance: PREGABALIN
     Indication: NEURALGIA
     Dosage: 50 MG, TID
     Route: 048
     Dates: start: 201807, end: 20190810
  3. PREGABALIN. [Concomitant]
     Active Substance: PREGABALIN
     Dosage: 50 MG, TID
     Route: 048
     Dates: start: 20190811

REACTIONS (6)
  - Inappropriate schedule of product administration [Unknown]
  - Drug ineffective for unapproved indication [Unknown]
  - Product dose omission issue [Unknown]
  - Underdose [Unknown]
  - Hypoaesthesia oral [Unknown]
  - Drug titration error [Unknown]
